FAERS Safety Report 6031526-5 (Version None)
Quarter: 2008Q4

REPORT INFORMATION
  Report Type: 
  Country: None (occurrence: None)
  Receive Date: 20081222
  Receipt Date: 20081022
  Transmission Date: 20090506
  Serious: No
  Sender: FDA-Public Use
  Company Number: US-WYE-H06538708

PATIENT
  Age: 41 Year
  Sex: Male
  Weight: 75.82 kg

DRUGS (2)
  1. PRISTIQ [Suspect]
     Indication: DEPRESSION
     Dosage: 50 MG 1X PER 1 DAY, ORAL
     Route: 048
     Dates: start: 20080929, end: 20081021
  2. VITAMINS NOS (VITAMINS NOS) [Concomitant]

REACTIONS (1)
  - DRUG SCREEN POSITIVE [None]
